FAERS Safety Report 10900617 (Version 1)
Quarter: 2015Q1

REPORT INFORMATION
  Report Type: Spontaneous
  Country: US (occurrence: None)
  Receive Date: 20150303
  Receipt Date: 20150303
  Transmission Date: 20150721
  Serious: No
  Sender: FDA-Public Use
  Company Number: None

PATIENT
  Age: 56 Year
  Sex: Male

DRUGS (1)
  1. HARVONI [Suspect]
     Active Substance: LEDIPASVIR\SOFOSBUVIR
     Indication: CHRONIC HEPATITIS C
     Dosage: 1 TABLET, DAILY, PO
     Route: 048
     Dates: start: 20141224

REACTIONS (2)
  - International normalised ratio decreased [None]
  - Product substitution issue [None]

NARRATIVE: CASE EVENT DATE: 20150201
